FAERS Safety Report 5418227-9 (Version None)
Quarter: 2007Q3

REPORT INFORMATION
  Report Type: 
  Country: None (occurrence: None)
  Receive Date: 20070817
  Receipt Date: 20070808
  Transmission Date: 20080115
  Serious: Yes (Hospitalization, Disabling)
  Sender: FDA-Public Use
  Company Number: US-ROCHE-510910

PATIENT
  Age: 51 Year
  Sex: Female
  Weight: 112.5 kg

DRUGS (14)
  1. CAPECITABINE [Suspect]
     Indication: BREAST CANCER
     Dosage: DAYS 1-14 EVERY THREE WEEKS FOR FOUR CYCLES-AS PER PROTOCOL.
     Route: 048
     Dates: start: 20050818
  2. DOCETAXEL [Suspect]
     Indication: BREAST CANCER
     Dosage: FOR FOUR CYCLES AS PER PROTOCOL.
     Route: 042
     Dates: start: 20050818
  3. TRASTUZUMAB [Suspect]
     Indication: BREAST CANCER
     Dosage: LOADING DOSE.
     Route: 042
     Dates: start: 20050818
  4. TRASTUZUMAB [Suspect]
     Dosage: MAINTENANCE DOSE, FOR A TOTAL OF ONE YEAR OF TRASTUZUMAB.
     Route: 042
     Dates: start: 20050908
  5. BENICAR [Concomitant]
     Indication: HYPERTENSION
     Route: 048
     Dates: start: 20010101
  6. TOPROL-XL [Concomitant]
     Indication: HYPERTENSION
     Route: 048
     Dates: start: 20010101
  7. MAXZIDE [Concomitant]
     Indication: HYPERTENSION
     Route: 048
     Dates: start: 20010101
  8. CELEBREX [Concomitant]
     Indication: ARTHRITIS
     Route: 048
     Dates: start: 20010101
  9. TOPAMAX [Concomitant]
     Indication: NEUROPATHY
     Dosage: 200 MG IN THE MORNING AND 400 MG IN THE EVENING.
     Route: 048
     Dates: start: 20000101
  10. NEURONTIN [Concomitant]
     Indication: NEUROPATHY
     Route: 048
     Dates: start: 20050601
  11. AZULFIDINE [Concomitant]
     Indication: ARTHRITIS
     Route: 048
     Dates: start: 20010101
  12. APIDRA [Concomitant]
     Dosage: REPORTED AS SLIDING SCALE DOSING
     Route: 058
     Dates: start: 20050101
  13. LANTUS [Concomitant]
     Dosage: DOSE REPORTED AS 79 U
     Route: 058
     Dates: start: 20050101
  14. PROTONIX [Concomitant]
     Route: 048
     Dates: start: 20050801

REACTIONS (1)
  - CEREBRAL ISCHAEMIA [None]
